FAERS Safety Report 9491019 (Version 2)
Quarter: 2013Q3

REPORT INFORMATION
  Report Type: Spontaneous
  Country: US (occurrence: US)
  Receive Date: 20130830
  Receipt Date: 20130924
  Transmission Date: 20140515
  Serious: No
  Sender: FDA-Public Use
  Company Number: US-PFIZER INC-2013248581

PATIENT
  Age: 76 Year
  Sex: Male
  Weight: 70.3 kg

DRUGS (2)
  1. TIKOSYN [Suspect]
     Indication: ATRIAL FIBRILLATION
     Dosage: 500 UG, 2X/DAY
     Route: 048
     Dates: start: 2010
  2. SIMVASTATIN [Interacting]
     Dosage: UNK
     Dates: start: 2010, end: 2013

REACTIONS (2)
  - Drug interaction [Unknown]
  - Drug ineffective [Unknown]
